FAERS Safety Report 10237170 (Version 1)
Quarter: 2014Q2

REPORT INFORMATION
  Report Type: Spontaneous
  Country: TN (occurrence: TN)
  Receive Date: 20140613
  Receipt Date: 20140613
  Transmission Date: 20141212
  Serious: Yes (Other)
  Sender: FDA-Public Use
  Company Number: TN-ABBVIE-14P-160-1247792-00

PATIENT
  Age: 50 Year
  Sex: Female

DRUGS (4)
  1. SODIUM VALPROATE [Suspect]
     Indication: EPILEPSY
     Dates: start: 2013
  2. LEVETIRACETAM [Suspect]
     Indication: EPILEPSY
     Dates: start: 2013
  3. CELECOXIB [Suspect]
     Indication: EPILEPSY
     Dates: start: 201306
  4. PHENOBARBITAL [Suspect]
     Indication: EPILEPSY
     Dates: start: 2013

REACTIONS (8)
  - Drug reaction with eosinophilia and systemic symptoms [Recovered/Resolved]
  - Erythema [Unknown]
  - Lymphadenopathy [Unknown]
  - Aspartate aminotransferase increased [Unknown]
  - Alanine aminotransferase increased [Unknown]
  - Pyrexia [Unknown]
  - Cardio-respiratory arrest [Unknown]
  - Status epilepticus [Recovered/Resolved]
